FAERS Safety Report 10688871 (Version 5)
Quarter: 2016Q3

REPORT INFORMATION
  Report Type: Spontaneous
  Country: JP (occurrence: JP)
  Receive Date: 20150103
  Receipt Date: 20160901
  Transmission Date: 20161109
  Serious: Yes (Congenital Anomaly, Other)
  Sender: FDA-Public Use
  Company Number: JP-BRISTOL-MYERS SQUIBB COMPANY-BMS-2014-004921

PATIENT

DRUGS (1)
  1. METGLUCO [Suspect]
     Active Substance: METFORMIN HYDROCHLORIDE
     Indication: PRODUCT USED FOR UNKNOWN INDICATION
     Dosage: 2250 MG, QD
     Route: 064

REACTIONS (6)
  - Foetal exposure during pregnancy [Unknown]
  - Dysmorphism [Unknown]
  - Blood insulin increased [Unknown]
  - Breech presentation [Unknown]
  - Hyperglycaemia [Unknown]
  - Premature baby [Unknown]
